FAERS Safety Report 10245053 (Version 1)
Quarter: 2014Q2

REPORT INFORMATION
  Report Type: Spontaneous
  Country: US (occurrence: None)
  Receive Date: 20140616
  Receipt Date: 20140616
  Transmission Date: 20141212
  Serious: Yes (Hospitalization, Disabling)
  Sender: FDA-Public Use
  Company Number: None

PATIENT
  Age: 59 Year
  Sex: Male
  Weight: 127.55 kg

DRUGS (1)
  1. ROSUVASTATIN [Suspect]
     Indication: BLOOD CHOLESTEROL INCREASED
     Dosage: STRENGTH: 40MG TAB  QTY: 90 OF 90  FREQUENCY: DAILY  TAKEN BY MOUTH
     Route: 048
     Dates: end: 20140512

REACTIONS (1)
  - Paraplegia [None]
